FAERS Safety Report 8102791-5 (Version None)
Quarter: 2011Q4

REPORT INFORMATION
  Report Type: 
  Country: None (occurrence: None)
  Receive Date: 20111222
  Receipt Date: 20110913
  Transmission Date: 20120403
  Serious: Yes (Hospitalization)
  Sender: FDA-Public Use
  Company Number: UTC-010199

PATIENT
  Age: 80 Year
  Sex: Female
  Weight: 59 kg

DRUGS (1)
  1. TYVASO [Suspect]
     Indication: ESSENTIAL HYPERTENSION
     Dosage: 18 -54 MICROGRAMS  (4 IN 1 D), INHALATION
     Route: 055
     Dates: start: 20110727

REACTIONS (2)
  - CARDIAC DISORDER [None]
  - LUNG DISORDER [None]
